FAERS Safety Report 8270543-1 (Version None)
Quarter: 2012Q2

REPORT INFORMATION
  Report Type: 
  Country: None (occurrence: None)
  Receive Date: 20120410
  Receipt Date: 20120402
  Transmission Date: 20120825
  Serious: Yes (Hospitalization)
  Sender: FDA-Public Use
  Company Number: AT-MEDIMMUNE-MEDI-0015390

PATIENT
  Sex: Female
  Weight: 2.4 kg

DRUGS (3)
  1. INFLORAN [Concomitant]
  2. SYNAGIS [Suspect]
     Route: 030
  3. PROTOVIT [Concomitant]

REACTIONS (1)
  - BRADYCARDIA [None]
